FAERS Safety Report 8334579-4 (Version None)
Quarter: 2012Q2

REPORT INFORMATION
  Report Type: 
  Country: None (occurrence: None)
  Receive Date: 20120503
  Receipt Date: 20120427
  Transmission Date: 20120825
  Serious: Yes (Other)
  Sender: FDA-Public Use
  Company Number: US-GILEAD-2012-0054265

PATIENT
  Age: 37 Year
  Sex: Female

DRUGS (3)
  1. NORVIR [Concomitant]
     Indication: HIV INFECTION
     Dosage: 100 MG, QD
     Route: 048
  2. REYATAZ [Concomitant]
     Indication: HIV INFECTION
     Dosage: 300 MG/KG, Q1HR
     Route: 048
  3. EMTRICITABINE/TENOFOVIR DISOPROXIL FUMARATE [Suspect]
     Indication: HIV INFECTION
     Dosage: 1 DF, QD
     Route: 048

REACTIONS (2)
  - ABORTION INDUCED [None]
  - FOETAL DEATH [None]
